FAERS Safety Report 4721691-1 (Version None)
Quarter: 2005Q3

REPORT INFORMATION
  Report Type: 
  Country: None (occurrence: None)
  Receive Date: 20050721
  Receipt Date: 20050228
  Transmission Date: 20060218
  Serious: No
  Sender: FDA-Public Use
  Company Number: US-BRISTOL-MYERS SQUIBB COMPANY-12879805

PATIENT
  Age: 18 Year
  Sex: Male
  Weight: 109 kg

DRUGS (1)
  1. COUMADIN [Suspect]
     Indication: INTRACRANIAL VENOUS SINUS THROMBOSIS
     Route: 048
     Dates: start: 20050201

REACTIONS (1)
  - ALOPECIA [None]
